FAERS Safety Report 17295108 (Version 3)
Quarter: 2020Q1

REPORT INFORMATION
  Report Type: Spontaneous
  Country: US (occurrence: US)
  Receive Date: 20200121
  Receipt Date: 20200330
  Transmission Date: 20200409
  Serious: Yes (Other)
  Sender: FDA-Public Use
  Company Number: US-CELGENEUS-USA-20200105958

PATIENT
  Sex: Female
  Weight: 68.1 kg

DRUGS (1)
  1. REVLIMID [Suspect]
     Active Substance: LENALIDOMIDE
     Indication: PLASMA CELL MYELOMA
     Dosage: 25 MILLIGRAM
     Route: 048
     Dates: start: 20190807

REACTIONS (8)
  - Dyspnoea [Unknown]
  - Neuropathy peripheral [Unknown]
  - Headache [Unknown]
  - Arrhythmia [Unknown]
  - Anxiety [Unknown]
  - Hypertension [Unknown]
  - Spinal pain [Unknown]
  - Tremor [Unknown]

NARRATIVE: CASE EVENT DATE: 2020
